FAERS Safety Report 14539938 (Version 1)
Quarter: 2018Q1

REPORT INFORMATION
  Report Type: Spontaneous
  Country: US (occurrence: US)
  Receive Date: 20180216
  Receipt Date: 20180216
  Transmission Date: 20180509
  Serious: Yes (Hospitalization)
  Sender: FDA-Public Use
  Company Number: US-JNJFOC-20180218998

PATIENT
  Age: 44 Year
  Sex: Female

DRUGS (1)
  1. INVOKANA [Suspect]
     Active Substance: CANAGLIFLOZIN
     Indication: TYPE 2 DIABETES MELLITUS
     Route: 048
     Dates: start: 20150115, end: 201708

REACTIONS (3)
  - Metatarsal excision [Unknown]
  - Osteomyelitis [Recovering/Resolving]
  - Diabetic ulcer [Recovering/Resolving]

NARRATIVE: CASE EVENT DATE: 20170822
